FAERS Safety Report 7440273-4 (Version None)
Quarter: 2011Q2

REPORT INFORMATION
  Report Type: 
  Country: None (occurrence: None)
  Receive Date: 20110427
  Receipt Date: 20110418
  Transmission Date: 20111010
  Serious: Yes (Other)
  Sender: FDA-Public Use
  Company Number: SE-TEVA-232706ISR

PATIENT
  Sex: Male

DRUGS (1)
  1. COPAXONE [Suspect]
     Indication: MULTIPLE SCLEROSIS
     Route: 058
     Dates: start: 20051025, end: 20100414

REACTIONS (12)
  - SKIN EXFOLIATION [None]
  - ARTHRALGIA [None]
  - GILBERT'S SYNDROME [None]
  - DRY SKIN [None]
  - VASCULITIS [None]
  - PAIN [None]
  - NEURALGIA [None]
  - PYREXIA [None]
  - DERMATOMYOSITIS [None]
  - SKIN DISCOLOURATION [None]
  - FATIGUE [None]
  - PARAESTHESIA [None]
